FAERS Safety Report 14454515 (Version 2)
Quarter: 2018Q1

REPORT INFORMATION
  Report Type: Spontaneous
  Country: JP (occurrence: JP)
  Receive Date: 20180129
  Receipt Date: 20180306
  Transmission Date: 20180509
  Serious: No
  Sender: FDA-Public Use
  Company Number: JP-ELI_LILLY_AND_COMPANY-JP201801011681

PATIENT
  Age: 65 Year
  Sex: Male

DRUGS (2)
  1. ZALUTIA 5MG [Suspect]
     Active Substance: TADALAFIL
     Indication: BENIGN PROSTATIC HYPERPLASIA
     Dosage: UNK
     Route: 048
     Dates: start: 20171215, end: 20180117
  2. URINORM                            /00227201/ [Concomitant]
     Active Substance: BENZBROMARONE
     Dosage: UNK UNK, QOD
     Route: 048
     Dates: start: 1998

REACTIONS (2)
  - Photopsia [Recovered/Resolved]
  - Hot flush [Unknown]

NARRATIVE: CASE EVENT DATE: 20171221
